FAERS Safety Report 9198506 (Version 2)
Quarter: 2013Q2

REPORT INFORMATION
  Report Type: Spontaneous
  Country: GB (occurrence: GB)
  Receive Date: 20130329
  Receipt Date: 20130507
  Transmission Date: 20140414
  Serious: Yes (Hospitalization, Other)
  Sender: FDA-Public Use
  Company Number: PHFR2013GB001655

PATIENT
  Age: 52 Year
  Sex: Male

DRUGS (2)
  1. CLOZARIL [Suspect]
     Indication: SCHIZOPHRENIA
     Dosage: 400 MG, UNK
     Route: 048
     Dates: start: 20030707
  2. AMISULPRIDE [Concomitant]
     Dosage: 200 MG, UNK
     Route: 048

REACTIONS (4)
  - Intestinal perforation [Unknown]
  - Ileus paralytic [Recovered/Resolved]
  - Intestinal obstruction [Recovered/Resolved]
  - Constipation [Unknown]
